FAERS Safety Report 6116724-4 (Version None)
Quarter: 2009Q1

REPORT INFORMATION
  Report Type: 
  Country: None (occurrence: None)
  Receive Date: 20090314
  Receipt Date: 20081222
  Transmission Date: 20090719
  Serious: No
  Sender: FDA-Public Use
  Company Number: US-ABBOTT-08P-163-0494538-00

PATIENT
  Sex: Male
  Weight: 113.5 kg

DRUGS (6)
  1. HUMIRA [Suspect]
     Indication: CROHN'S DISEASE
     Route: 058
     Dates: start: 20081215, end: 20081215
  2. HUMIRA [Suspect]
     Route: 058
  3. GEODON [Concomitant]
     Indication: DRUG USE FOR UNKNOWN INDICATION
     Route: 048
  4. LIALDA [Concomitant]
     Indication: CROHN'S DISEASE
     Route: 048
  5. AZASAN [Concomitant]
     Indication: CROHN'S DISEASE
     Route: 048
  6. STRATTERA [Concomitant]
     Indication: ATTENTION DEFICIT/HYPERACTIVITY DISORDER
     Route: 048

REACTIONS (3)
  - ARRHYTHMIA [None]
  - CHEST PAIN [None]
  - PALPITATIONS [None]
